FAERS Safety Report 8504924-5 (Version None)
Quarter: 2012Q3

REPORT INFORMATION
  Report Type: 
  Country: None (occurrence: None)
  Receive Date: 20120702
  Receipt Date: 20120618
  Transmission Date: 20120928
  Serious: Yes (Other)
  Sender: FDA-Public Use
  Company Number: 2012IL0160

PATIENT

DRUGS (2)
  1. PREDNISONE TAB [Concomitant]
  2. KINERET [Suspect]
     Indication: JUVENILE ARTHRITIS
     Dosage: (1,5 MG/KG)
     Dates: end: 20120430

REACTIONS (3)
  - RASH [None]
  - ALANINE AMINOTRANSFERASE INCREASED [None]
  - HEPATIC FUNCTION ABNORMAL [None]
